FAERS Safety Report 12101573 (Version 1)
Quarter: 2016Q1

REPORT INFORMATION
  Report Type: Report from Study
  Country: MU (occurrence: MU)
  Receive Date: 20160222
  Receipt Date: 20160222
  Transmission Date: 20160526
  Serious: Yes (Death, Hospitalization, Other)
  Sender: FDA-Public Use
  Company Number: PHHY2016MU017026

PATIENT
  Age: 67 Year
  Sex: Female

DRUGS (4)
  1. GLIVEC [Suspect]
     Active Substance: IMATINIB MESYLATE
     Indication: CHRONIC MYELOID LEUKAEMIA
     Dosage: 400 MG, QD
     Route: 048
     Dates: start: 20141029
  2. GLIVEC [Suspect]
     Active Substance: IMATINIB MESYLATE
     Dosage: 300 MG, BID
     Route: 048
     Dates: start: 20151226
  3. GLIVEC [Suspect]
     Active Substance: IMATINIB MESYLATE
     Dosage: 600 MG, BID
     Route: 048
     Dates: start: 20151212
  4. GLIVEC [Suspect]
     Active Substance: IMATINIB MESYLATE
     Dosage: 400 MG, BID
     Route: 048
     Dates: end: 20160105

REACTIONS (9)
  - Chronic myeloid leukaemia [Fatal]
  - Intermittent claudication [Unknown]
  - Coronary artery disease [Unknown]
  - Pyrexia [Fatal]
  - White blood cell count increased [Unknown]
  - Electrolyte imbalance [Fatal]
  - Death [Fatal]
  - Drug resistance [Unknown]
  - Gastritis [Unknown]

NARRATIVE: CASE EVENT DATE: 20141114
